FAERS Safety Report 12134676 (Version 1)
Quarter: 2016Q1

REPORT INFORMATION
  Report Type: Spontaneous
  Country: FR (occurrence: FR)
  Receive Date: 20160301
  Receipt Date: 20160301
  Transmission Date: 20160526
  Serious: Yes (Other)
  Sender: FDA-Public Use
  Company Number: FR-PFIZER INC-2016113433

PATIENT
  Age: 75 Year
  Sex: Female

DRUGS (10)
  1. SEROPLEX [Concomitant]
     Active Substance: ESCITALOPRAM OXALATE
  2. BISOPROLOL HEMIFUMARATE [Concomitant]
     Active Substance: BISOPROLOL FUMARATE
  3. KARDEGIC [Concomitant]
     Active Substance: ASPIRIN LYSINE
  4. LYRICA [Concomitant]
     Active Substance: PREGABALIN
  5. SOLU-MEDROL [Suspect]
     Active Substance: METHYLPREDNISOLONE SODIUM SUCCINATE
     Indication: RHEUMATOID ARTHRITIS
     Dosage: 120 MG, UNK
     Route: 042
     Dates: start: 201507, end: 201507
  6. CRESTOR [Concomitant]
     Active Substance: ROSUVASTATIN CALCIUM
  7. INEXIUM /01479302/ [Concomitant]
     Active Substance: ESOMEPRAZOLE MAGNESIUM
  8. MABTHERA [Suspect]
     Active Substance: RITUXIMAB
     Indication: RHEUMATOID ARTHRITIS
     Dosage: 1 G, UNK
     Route: 042
     Dates: start: 201507, end: 201507
  9. METOJECT [Concomitant]
     Active Substance: METHOTREXATE SODIUM
  10. FOSAVANCE [Concomitant]
     Active Substance: ALENDRONATE SODIUM\CHOLECALCIFEROL

REACTIONS (1)
  - Urinary tract infection [Recovered/Resolved]

NARRATIVE: CASE EVENT DATE: 201507
